FAERS Safety Report 8291006-3 (Version None)
Quarter: 2012Q2

REPORT INFORMATION
  Report Type: 
  Country: None (occurrence: None)
  Receive Date: 20120417
  Receipt Date: 20110719
  Transmission Date: 20120825
  Serious: No
  Sender: FDA-Public Use
  Company Number: US-ASTRAZENECA-2011SE43512

PATIENT
  Age: 63 Year
  Sex: Male

DRUGS (20)
  1. WELLBUTRIN SR [Concomitant]
     Indication: HYPERTENSION
  2. ACTOS [Concomitant]
     Indication: DIABETES MELLITUS
  3. CHONDROITIN [Concomitant]
     Indication: ARTHROPATHY
  4. LEXAPRO [Concomitant]
     Indication: HYPERTENSION
  5. METFORMIN HCL [Concomitant]
     Indication: DIABETES MELLITUS
  6. REQUIP [Concomitant]
     Indication: RESTLESS LEGS SYNDROME
  7. TRICOR [Concomitant]
     Indication: BLOOD TRIGLYCERIDES
  8. LIPITOR [Concomitant]
     Indication: BLOOD CHOLESTEROL
  9. GABAPENTIN [Concomitant]
     Indication: NERVE INJURY
  10. CLONAZEPAM [Concomitant]
     Indication: RELAXATION THERAPY
  11. NEXIUM [Suspect]
     Indication: GASTROOESOPHAGEAL REFLUX DISEASE
     Route: 048
     Dates: start: 20060101
  12. FISH OIL [Concomitant]
     Indication: TOTAL CHOLESTEROL/HDL RATIO
  13. AVALIDE [Concomitant]
     Indication: HYPERTENSION
  14. AVAPRO [Concomitant]
     Indication: HYPERTENSION
  15. NASACORT AQ [Concomitant]
     Indication: NASAL DISORDER
  16. VICODIN [Concomitant]
     Indication: ARTHRALGIA
  17. VICODIN [Concomitant]
     Indication: BACK PAIN
  18. GLUCOSAMINE [Concomitant]
     Indication: ARTHROPATHY
  19. GARLIC [Concomitant]
     Indication: CARDIAC DISORDER
  20. MULTIVITAMINS (C,D,E-VITAMIN) [Concomitant]
     Indication: VITAMIN SUPPLEMENTATION

REACTIONS (2)
  - HYPERTENSION [None]
  - MUSCLE DISORDER [None]
